FAERS Safety Report 8588860-4 (Version None)
Quarter: 2012Q3

REPORT INFORMATION
  Report Type: 
  Country: None (occurrence: None)
  Receive Date: 20120813
  Receipt Date: 20120807
  Transmission Date: 20120928
  Serious: Yes (Other)
  Sender: FDA-Public Use
  Company Number: US-PFIZER INC-2012192338

PATIENT
  Age: 51 Year
  Sex: Female
  Weight: 61.224 kg

DRUGS (3)
  1. CELEBREX [Suspect]
     Indication: MUSCULOSKELETAL STIFFNESS
  2. CELEBREX [Suspect]
     Indication: PAIN
     Dosage: UNK, 1X/DAY
     Route: 048
     Dates: start: 20120717, end: 20120727
  3. CELEBREX [Suspect]
     Indication: MUSCULOSKELETAL DISCOMFORT

REACTIONS (7)
  - FEELING ABNORMAL [None]
  - INFLAMMATION [None]
  - RASH GENERALISED [None]
  - HYPERSENSITIVITY [None]
  - PRURITUS GENERALISED [None]
  - GENERALISED ERYTHEMA [None]
  - ACTIVITIES OF DAILY LIVING IMPAIRED [None]
